FAERS Safety Report 7889193-1 (Version None)
Quarter: 2011Q4

REPORT INFORMATION
  Report Type: 
  Country: None (occurrence: None)
  Receive Date: 20111101
  Receipt Date: 20111018
  Transmission Date: 20120403
  Serious: Yes (Other)
  Sender: FDA-Public Use
  Company Number: TPA2011A06523

PATIENT
  Age: 67 Year
  Sex: Female
  Weight: 75.2971 kg

DRUGS (1)
  1. ACTOS [Suspect]
     Indication: TYPE 2 DIABETES MELLITUS
     Dosage: 15 MG, 1 IN 1 D
     Dates: start: 20081008, end: 20111004

REACTIONS (2)
  - STREPTOCOCCAL URINARY TRACT INFECTION [None]
  - BLADDER TRANSITIONAL CELL CARCINOMA [None]
